FAERS Safety Report 23562274 (Version 1)
Quarter: 2024Q1

REPORT INFORMATION
  Report Type: Spontaneous
  Country: US (occurrence: US)
  Receive Date: 20240226
  Receipt Date: 20240226
  Transmission Date: 20240410
  Serious: Yes (Other)
  Sender: FDA-Public Use
  Company Number: US-SANOFI-01949538

PATIENT
  Age: 70 Year
  Sex: Female

DRUGS (4)
  1. KEVZARA [Suspect]
     Active Substance: SARILUMAB
     Indication: Rheumatoid arthritis
     Dosage: 150 MG, QOW
     Route: 065
  2. LYRICA [Concomitant]
     Active Substance: PREGABALIN
     Dosage: UNK
  3. CELEBREX [Concomitant]
     Active Substance: CELECOXIB
  4. CEFIXIME [Concomitant]
     Active Substance: CEFIXIME
     Dosage: UNK

REACTIONS (8)
  - Sjogren^s syndrome [Unknown]
  - Gait disturbance [Unknown]
  - COVID-19 [Unknown]
  - Urinary tract infection [Unknown]
  - Abdominal pain upper [Unknown]
  - Dysuria [Unknown]
  - Bladder pain [Unknown]
  - Incorrect dose administered [Unknown]

NARRATIVE: CASE EVENT DATE: 20240101
